FAERS Safety Report 5615909-0 (Version None)
Quarter: 2008Q1

REPORT INFORMATION
  Report Type: 
  Country: None (occurrence: None)
  Receive Date: 20080201
  Receipt Date: 20080117
  Transmission Date: 20080703
  Serious: Yes (Hospitalization)
  Sender: FDA-Public Use
  Company Number: 2008S1001019

PATIENT
  Age: 89 Year
  Sex: Female

DRUGS (3)
  1. DOXAZOSIN MESYLATE [Suspect]
     Indication: HYPERTENSION
     Dosage: 1; ORAL
     Route: 048
     Dates: end: 20050801
  2. LISINOPRIL [Suspect]
     Indication: HYPERTENSION
     Dosage: 1; ORAL
     Route: 048
     Dates: end: 20050801
  3. DILTIAZEM [Concomitant]

REACTIONS (5)
  - DIZZINESS [None]
  - FALL [None]
  - FEMUR FRACTURE [None]
  - HYPOTENSION [None]
  - MITRAL VALVE INCOMPETENCE [None]
